FAERS Safety Report 21885847 (Version 1)
Quarter: 2023Q1

REPORT INFORMATION
  Report Type: Spontaneous
  Country: FR (occurrence: FR)
  Receive Date: 20230119
  Receipt Date: 20230119
  Transmission Date: 20230418
  Serious: Yes (Life-Threatening, Hospitalization)
  Sender: FDA-Public Use
  Company Number: None

PATIENT
  Age: 51 Year
  Sex: Female
  Weight: 54.5 kg

DRUGS (16)
  1. PAXLOVID [Suspect]
     Active Substance: NIRMATRELVIR\RITONAVIR
     Indication: COVID-19 treatment
     Dosage: 2 DF, 1X/DAY
     Route: 048
     Dates: start: 20221223, end: 20221227
  2. VALGANCICLOVIR HYDROCHLORIDE [Concomitant]
     Active Substance: VALGANCICLOVIR HYDROCHLORIDE
  3. NEORAL [Concomitant]
     Active Substance: CYCLOSPORINE
  4. CLAIRYG [Concomitant]
     Active Substance: HUMAN IMMUNOGLOBULIN G
  5. SMECTA [Concomitant]
     Active Substance: MONTMORILLONITE
  6. RACECADOTRIL ARROW [Concomitant]
  7. RABEPRAZOLE ALTER [Concomitant]
  8. PREDNISONE [Concomitant]
     Active Substance: PREDNISONE
  9. BACTRIM [Concomitant]
     Active Substance: SULFAMETHOXAZOLE\TRIMETHOPRIM
  10. CELLCEPT [Concomitant]
     Active Substance: MYCOPHENOLATE MOFETIL
  11. CINACALCET ARROW [Concomitant]
  12. LERCANIDIPINE HYDROCHLORIDE [Concomitant]
     Active Substance: LERCANIDIPINE HYDROCHLORIDE
  13. RILMENIDINE PHOSPHATE [Concomitant]
     Active Substance: RILMENIDINE PHOSPHATE
  14. SODIUM BICARBONATE [Concomitant]
     Active Substance: SODIUM BICARBONATE
  15. URAPIDIL HYDROCHLORIDE [Concomitant]
     Active Substance: URAPIDIL HYDROCHLORIDE
  16. ATENOLOL [Concomitant]
     Active Substance: ATENOLOL

REACTIONS (2)
  - Renal artery occlusion [Not Recovered/Not Resolved]
  - Graft loss [Not Recovered/Not Resolved]

NARRATIVE: CASE EVENT DATE: 20221230
